FAERS Safety Report 5717714-3 (Version None)
Quarter: 2008Q2

REPORT INFORMATION
  Report Type: 
  Country: None (occurrence: None)
  Receive Date: 20080425
  Receipt Date: 20080416
  Transmission Date: 20081010
  Serious: Yes (Hospitalization, Other)
  Sender: FDA-Public Use
  Company Number: AT-JNJFOC-20080405211

PATIENT
  Age: 86 Year
  Sex: Female
  Weight: 65 kg

DRUGS (4)
  1. REMICADE [Suspect]
     Route: 042
  2. REMICADE [Suspect]
     Indication: CROHN'S DISEASE
     Route: 042
  3. NICORANDIL [Concomitant]
  4. PANTOPRAZOL [Concomitant]
     Route: 042

REACTIONS (5)
  - ARTHRALGIA [None]
  - ARTHRITIS [None]
  - CONVULSION [None]
  - HOSPITALISATION [None]
  - PYREXIA [None]
